FAERS Safety Report 6984548-1 (Version None)
Quarter: 2010Q3

REPORT INFORMATION
  Report Type: 
  Country: None (occurrence: None)
  Receive Date: 20100915
  Receipt Date: 20100907
  Transmission Date: 20110219
  Serious: Yes (Other)
  Sender: FDA-Public Use
  Company Number: FR-PFIZER INC-2010112532

PATIENT
  Age: 54 Year
  Sex: Male

DRUGS (5)
  1. ALDACTONE [Suspect]
     Indication: ASCITES
     Dosage: UNK
     Dates: start: 20100701
  2. RIBAVIRIN [Suspect]
     Indication: HEPATITIS C
  3. INTERFERON [Concomitant]
  4. NEORAL [Concomitant]
  5. LASIX [Concomitant]

REACTIONS (1)
  - ANAEMIA [None]
